FAERS Safety Report 22000321 (Version 1)
Quarter: 2023Q1

REPORT INFORMATION
  Report Type: Other
  Country: CN (occurrence: CN)
  Receive Date: 20230216
  Receipt Date: 20230216
  Transmission Date: 20230418
  Serious: Yes (Other)
  Sender: FDA-Public Use
  Company Number: CN-PARATEK PHARMACEUTICALS, INC.-2023PTK00056

PATIENT
  Age: 75 Year
  Sex: Male

DRUGS (3)
  1. NUZYRA [Suspect]
     Active Substance: OMADACYCLINE
     Indication: COVID-19
     Dosage: 0.1 G, 1X/DAY
     Route: 041
     Dates: start: 20230116, end: 20230118
  2. NUZYRA [Suspect]
     Active Substance: OMADACYCLINE
     Indication: Sepsis
  3. CEFOPERAZONE SODIUM\SULBACTAM SODIUM [Concomitant]
     Active Substance: CEFOPERAZONE SODIUM\SULBACTAM SODIUM
     Dosage: UNK
     Dates: start: 20230111, end: 20230116

REACTIONS (1)
  - Liver injury [Recovering/Resolving]

NARRATIVE: CASE EVENT DATE: 20230118
